FAERS Safety Report 25042173 (Version 1)
Quarter: 2025Q1

REPORT INFORMATION
  Report Type: Spontaneous
  Country: NL (occurrence: NL)
  Receive Date: 20250305
  Receipt Date: 20250305
  Transmission Date: 20250409
  Serious: Yes (Other)
  Sender: TEVA
  Company Number: None

PATIENT
  Age: 57 Year
  Sex: Male
  Weight: 70 kg

DRUGS (1)
  1. CIPROFLOXACIN [Suspect]
     Active Substance: CIPROFLOXACIN
     Indication: Cystitis
     Dosage: 1 PIECE 2X PER DAY, 13 DAYS IN A ROW, / BRAND NAME NOT SPECIFIED
     Route: 048
     Dates: start: 20241111

REACTIONS (5)
  - Depressed mood [Unknown]
  - Stress [Unknown]
  - Hyperhidrosis [Unknown]
  - Exercise tolerance decreased [Unknown]
  - Poor quality sleep [Unknown]
